FAERS Safety Report 10531467 (Version 2)
Quarter: 2014Q4

REPORT INFORMATION
  Report Type: Spontaneous
  Country: CH (occurrence: CH)
  Receive Date: 20141021
  Receipt Date: 20141031
  Transmission Date: 20150529
  Serious: Yes (Death, Other)
  Sender: FDA-Public Use
  Company Number: CH-ASTRAZENECA-2014SE78455

PATIENT
  Age: 72 Year
  Sex: Male

DRUGS (6)
  1. ASPIRIN CARDIO (NON AZ PRODUCT) [Interacting]
     Active Substance: ASPIRIN
     Indication: ACUTE MYOCARDIAL INFARCTION
     Route: 048
     Dates: start: 20140501, end: 20140522
  2. LIQUEMIN [Interacting]
     Active Substance: HEPARIN SODIUM
     Indication: ACUTE MYOCARDIAL INFARCTION
     Dosage: 25000 IU/5 ML
     Route: 065
     Dates: start: 20140502, end: 20140519
  3. BRILIQUE [Suspect]
     Active Substance: TICAGRELOR
     Indication: ACUTE MYOCARDIAL INFARCTION
     Route: 048
     Dates: start: 20140430
  4. BRILIQUE [Interacting]
     Active Substance: TICAGRELOR
     Indication: ACUTE MYOCARDIAL INFARCTION
     Route: 048
     Dates: start: 20140501, end: 20140522
  5. ASPIRIN CARDIO (NON AZ PRODUCT) [Interacting]
     Active Substance: ASPIRIN
     Indication: ACUTE MYOCARDIAL INFARCTION
     Route: 048
     Dates: start: 20140430
  6. LIQUEMIN [Interacting]
     Active Substance: HEPARIN SODIUM
     Indication: ACUTE MYOCARDIAL INFARCTION
     Route: 065

REACTIONS (3)
  - Drug interaction [Unknown]
  - Pulmonary alveolar haemorrhage [Fatal]
  - Post procedural haemorrhage [Fatal]

NARRATIVE: CASE EVENT DATE: 20140502
